FAERS Safety Report 9100582 (Version 1)
Quarter: 2013Q1

REPORT INFORMATION
  Report Type: Spontaneous
  Country: FR (occurrence: FR)
  Receive Date: 20130215
  Receipt Date: 20130215
  Transmission Date: 20140127
  Serious: Yes (Hospitalization)
  Sender: FDA-Public Use
  Company Number: FR-JNJFOC-20130204109

PATIENT
  Age: 76 Year
  Sex: Male

DRUGS (7)
  1. IXPRIM [Suspect]
     Indication: PRODUCT USED FOR UNKNOWN INDICATION
     Route: 048
     Dates: end: 20121002
  2. CYMBALTA [Suspect]
     Indication: DEPRESSION
     Route: 048
     Dates: end: 20121010
  3. THERALENE [Suspect]
     Indication: PRODUCT USED FOR UNKNOWN INDICATION
     Route: 048
     Dates: end: 20121010
  4. NOVONORM [Concomitant]
     Indication: TYPE 2 DIABETES MELLITUS
     Route: 048
  5. KARDEGIC [Concomitant]
     Indication: MYOCARDIAL ISCHAEMIA
     Route: 048
  6. PENTOXIFYLLINE [Concomitant]
     Indication: THROMBOSIS PROPHYLAXIS
     Route: 048
  7. LASILIX [Concomitant]
     Indication: HYPERTENSION
     Route: 048

REACTIONS (2)
  - Confusional state [Not Recovered/Not Resolved]
  - Pyrexia [Not Recovered/Not Resolved]
